FAERS Safety Report 7065391-4 (Version None)
Quarter: 2010Q4

REPORT INFORMATION
  Report Type: 
  Country: None (occurrence: None)
  Receive Date: 20101027
  Receipt Date: 20101019
  Transmission Date: 20110411
  Serious: Yes (Hospitalization)
  Sender: FDA-Public Use
  Company Number: DE-ROCHE-732008

PATIENT
  Sex: Female
  Weight: 61.3 kg

DRUGS (6)
  1. BEVACIZUMAB [Suspect]
     Indication: NON-SMALL CELL LUNG CANCER
     Dosage: FORM: INFUSION, LAST DOSE PRIOR TO SAE: 20 SEPTEMBER 2010
     Route: 042
     Dates: start: 20100512
  2. PEMETREXED [Suspect]
     Indication: NON-SMALL CELL LUNG CANCER
     Dosage: FORM: INFUSION, LAST DOSE PRIOR TO SAE: 20 SEPTEMBER 2010
     Route: 042
     Dates: start: 20100512
  3. FORTECORTIN [Concomitant]
  4. FORTECORTIN [Concomitant]
  5. FOLSAN [Concomitant]
  6. KEVATRIL [Concomitant]
     Dosage: TOTAL DAILY DOSE: 1 AMPULE

REACTIONS (4)
  - DECREASED APPETITE [None]
  - FATIGUE [None]
  - GENERAL PHYSICAL HEALTH DETERIORATION [None]
  - WEIGHT DECREASED [None]
